APPROVED DRUG PRODUCT: KETOROLAC TROMETHAMINE
Active Ingredient: KETOROLAC TROMETHAMINE
Strength: 15MG/ML
Dosage Form/Route: INJECTABLE;INJECTION
Application: A075348 | Product #001
Applicant: APOTHECON INC DIV BRISTOL MYERS SQUIBB
Approved: Nov 28, 2000 | RLD: No | RS: No | Type: DISCN